FAERS Safety Report 9454519 (Version 1)
Quarter: 2013Q3

REPORT INFORMATION
  Report Type: Spontaneous
  Country: US (occurrence: None)
  Receive Date: 20130808
  Receipt Date: 20130808
  Transmission Date: 20140515
  Serious: Yes (Hospitalization)
  Sender: FDA-Public Use
  Company Number: US-000746

PATIENT
  Age: 62 Year
  Sex: Female

DRUGS (5)
  1. GATTEX [Suspect]
     Indication: SHORT-BOWEL SYNDROME
     Dosage: 0.25 MG, QD, STREN/VOLUM: 0.25 ML/ FREQU: ONCE DAILY SUBCUTANEOUS
     Route: 058
     Dates: start: 20130717, end: 20130724
  2. VALIUM [Concomitant]
  3. ABILIFY [Concomitant]
  4. AMBEIN [Concomitant]
  5. VIIBRYD [Concomitant]

REACTIONS (2)
  - Pyrexia [None]
  - Local swelling [None]
